FAERS Safety Report 16686482 (Version 3)
Quarter: 2019Q4

REPORT INFORMATION
  Report Type: Report from Study
  Country: US (occurrence: US)
  Receive Date: 20190809
  Receipt Date: 20191210
  Transmission Date: 20200122
  Serious: Yes (Hospitalization, Other)
  Sender: FDA-Public Use
  Company Number: US-ROCHE-2374644

PATIENT
  Age: 69 Year
  Sex: Female
  Weight: 81.72 kg

DRUGS (13)
  1. BACLOFEN. [Concomitant]
     Active Substance: BACLOFEN
     Indication: MUSCLE RELAXANT THERAPY
  2. ZETIA [Concomitant]
     Active Substance: EZETIMIBE
     Indication: BLOOD CHOLESTEROL INCREASED
  3. VITAMIN B [Concomitant]
     Active Substance: VITAMIN B
  4. PROTONIX [Concomitant]
     Active Substance: PANTOPRAZOLE SODIUM
     Indication: GASTROOESOPHAGEAL REFLUX DISEASE
  5. OCREVUS [Suspect]
     Active Substance: OCRELIZUMAB
     Route: 042
     Dates: start: 20180806
  6. TIZANIDINE. [Concomitant]
     Active Substance: TIZANIDINE
  7. REQUIP [Concomitant]
     Active Substance: ROPINIROLE HYDROCHLORIDE
     Indication: RESTLESS LEGS SYNDROME
  8. LIPITOR [Concomitant]
     Active Substance: ATORVASTATIN CALCIUM
     Indication: BLOOD CHOLESTEROL INCREASED
  9. OCREVUS [Suspect]
     Active Substance: OCRELIZUMAB
     Indication: RELAPSING-REMITTING MULTIPLE SCLEROSIS
     Route: 042
     Dates: start: 20180816
  10. AMPYRA [Concomitant]
     Active Substance: DALFAMPRIDINE
  11. CELEBREX [Concomitant]
     Active Substance: CELECOXIB
     Indication: ARTHRITIS
  12. LYRICA [Concomitant]
     Active Substance: PREGABALIN
     Indication: NEURALGIA
  13. COPAXONE [Concomitant]
     Active Substance: GLATIRAMER ACETATE

REACTIONS (10)
  - Dental caries [Unknown]
  - B-lymphocyte count decreased [Unknown]
  - Bedridden [Recovered/Resolved]
  - Streptococcal infection [Unknown]
  - Gait disturbance [Recovering/Resolving]
  - Sepsis [Recovered/Resolved]
  - Lethargy [Recovering/Resolving]
  - Contusion [Recovering/Resolving]
  - Thinking abnormal [Not Recovered/Not Resolved]
  - Therapy non-responder [Unknown]

NARRATIVE: CASE EVENT DATE: 201904
